FAERS Safety Report 25418822 (Version 2)
Quarter: 2025Q2

REPORT INFORMATION
  Report Type: Spontaneous
  Country: US (occurrence: US)
  Receive Date: 20250610
  Receipt Date: 20250616
  Transmission Date: 20250717
  Serious: Yes (Hospitalization, Other)
  Sender: BRISTOL-MYERS SQUIBB COMPANY
  Company Number: US-BRISTOL-MYERS SQUIBB COMPANY-2025-082374

PATIENT
  Age: 75 Year
  Sex: Female
  Weight: 61.23 kg

DRUGS (3)
  1. ELIQUIS [Suspect]
     Active Substance: APIXABAN
     Indication: Atrial fibrillation
     Route: 048
  2. ELIQUIS [Suspect]
     Active Substance: APIXABAN
     Indication: Cerebrovascular accident prophylaxis
  3. SOTALOL [Concomitant]
     Active Substance: SOTALOL
     Indication: Product used for unknown indication
     Dosage: HALF A TABLET, ONCE A DAY

REACTIONS (6)
  - Memory impairment [Unknown]
  - Discomfort [Unknown]
  - Cardiac hypertrophy [Unknown]
  - Thrombosis [Unknown]
  - Aneurysm [Unknown]
  - Pneumonia [Unknown]
